FAERS Safety Report 23381121 (Version 3)
Quarter: 2024Q1

REPORT INFORMATION
  Report Type: Spontaneous
  Country: JP (occurrence: JP)
  Receive Date: 20240109
  Receipt Date: 20240307
  Transmission Date: 20240410
  Serious: Yes (Death, Other)
  Sender: FDA-Public Use
  Company Number: JP-ASTELLAS-2024JP000020

PATIENT
  Age: 8 Decade
  Sex: Male

DRUGS (4)
  1. XOSPATA [Suspect]
     Active Substance: GILTERITINIB
     Indication: Acute myeloid leukaemia
     Route: 048
     Dates: start: 20231225, end: 20231228
  2. VENETOCLAX [Suspect]
     Active Substance: VENETOCLAX
     Indication: Product used for unknown indication
     Dosage: UNK UNK, UNKNOWN FREQ.
     Route: 065
  3. AZACITIDINE [Suspect]
     Active Substance: AZACITIDINE
     Indication: Product used for unknown indication
     Dosage: UNK UNK, UNKNOWN FREQ.
     Route: 065
  4. HYDREA [Suspect]
     Active Substance: HYDROXYUREA
     Indication: Product used for unknown indication
     Route: 065

REACTIONS (1)
  - Tumour lysis syndrome [Fatal]

NARRATIVE: CASE EVENT DATE: 20231226
